FAERS Safety Report 13639518 (Version 1)
Quarter: 2017Q2

REPORT INFORMATION
  Report Type: Spontaneous
  Country: US (occurrence: US)
  Receive Date: 20170609
  Receipt Date: 20170609
  Transmission Date: 20170830
  Serious: No
  Sender: FDA-Public Use
  Company Number: US-ROCHE-238085

PATIENT
  Sex: Female

DRUGS (2)
  1. KLONOPIN [Suspect]
     Active Substance: CLONAZEPAM
     Indication: PANIC ATTACK
     Route: 048
  2. CELEXA [Concomitant]
     Active Substance: CITALOPRAM HYDROBROMIDE

REACTIONS (7)
  - Stress [Unknown]
  - Weight increased [Unknown]
  - Skin discolouration [Unknown]
  - Dry mouth [Unknown]
  - Oral mucosal blistering [Unknown]
  - Back pain [Not Recovered/Not Resolved]
  - Lichen planus [Unknown]
